FAERS Safety Report 8271330-0 (Version None)
Quarter: 2012Q2

REPORT INFORMATION
  Report Type: 
  Country: None (occurrence: None)
  Receive Date: 20120410
  Receipt Date: 20120102
  Transmission Date: 20120825
  Serious: No
  Sender: FDA-Public Use
  Company Number: US-NOVEN-12US003864

PATIENT
  Sex: Male

DRUGS (4)
  1. FENTANYL CITRATE [Suspect]
     Indication: BACK PAIN
     Dosage: 75 MG, QOD
     Route: 062
     Dates: start: 20111201
  2. FENTANYL CITRATE [Suspect]
     Dosage: 50 UG/HR
  3. LIDOCAIN                           /00033401/ [Concomitant]
     Indication: BACK PAIN
     Route: 061
  4. FENTANYL CITRATE [Suspect]
     Dosage: 50 MG, QOD
     Route: 062
     Dates: start: 20111201

REACTIONS (1)
  - INADEQUATE ANALGESIA [None]
